FAERS Safety Report 6847781-5 (Version None)
Quarter: 2010Q3

REPORT INFORMATION
  Report Type: 
  Country: None (occurrence: None)
  Receive Date: 20100716
  Receipt Date: 20100712
  Transmission Date: 20110219
  Serious: Yes (Hospitalization)
  Sender: FDA-Public Use
  Company Number: US-GILEAD-2010-0030380

PATIENT
  Sex: Male

DRUGS (13)
  1. LETAIRIS [Suspect]
     Indication: COR PULMONALE CHRONIC
     Route: 048
     Dates: start: 20091218
  2. TYVASO [Concomitant]
  3. ASPIRIN [Concomitant]
  4. HYDROCHLOROTHIAZIDE [Concomitant]
  5. METOPROLOL [Concomitant]
  6. LISINOPRIL [Concomitant]
  7. NITROSTAT [Concomitant]
  8. PRAVASTATIN [Concomitant]
  9. SPIRIVA [Concomitant]
  10. PROAIR HFA [Concomitant]
  11. SYMBICORT [Concomitant]
  12. COMBIVENT [Concomitant]
  13. PANTOPRAZOLE [Concomitant]

REACTIONS (4)
  - DIZZINESS [None]
  - HAEMOGLOBIN DECREASED [None]
  - HYPOTENSION [None]
  - TRANSFUSION [None]
